FAERS Safety Report 12734925 (Version 1)
Quarter: 2016Q3

REPORT INFORMATION
  Report Type: Spontaneous
  Country: US (occurrence: US)
  Receive Date: 20160912
  Receipt Date: 20160912
  Transmission Date: 20161109
  Serious: No
  Sender: FDA-Public Use
  Company Number: US-JNJFOC-20160709750

PATIENT
  Age: 49 Year
  Sex: Female
  Weight: 147.42 kg

DRUGS (5)
  1. XARELTO [Suspect]
     Active Substance: RIVAROXABAN
     Indication: HAEMANGIOMA
     Route: 048
     Dates: start: 20160705
  2. XARELTO [Suspect]
     Active Substance: RIVAROXABAN
     Indication: HAEMANGIOMA
     Route: 048
     Dates: start: 20160614, end: 20160704
  3. XARELTO [Suspect]
     Active Substance: RIVAROXABAN
     Indication: THROMBOPHLEBITIS SUPERFICIAL
     Route: 048
     Dates: start: 20160614, end: 20160704
  4. XARELTO [Suspect]
     Active Substance: RIVAROXABAN
     Indication: THROMBOPHLEBITIS SUPERFICIAL
     Route: 048
     Dates: start: 20160705
  5. XOPENEX [Concomitant]
     Active Substance: LEVALBUTEROL HYDROCHLORIDE
     Indication: ASTHMA
     Route: 055
     Dates: start: 2001

REACTIONS (14)
  - Pain in extremity [Unknown]
  - Peripheral swelling [Unknown]
  - Paraesthesia [Unknown]
  - Rash [Unknown]
  - Gingival pain [Unknown]
  - Back pain [Unknown]
  - Burning sensation [Unknown]
  - Flushing [Unknown]
  - Pain in extremity [Unknown]
  - Headache [Unknown]
  - Sensory disturbance [Unknown]
  - Pain [Unknown]
  - Product use issue [Unknown]
  - Off label use [Unknown]

NARRATIVE: CASE EVENT DATE: 201606
